FAERS Safety Report 9517653 (Version 1)
Quarter: 2013Q3

REPORT INFORMATION
  Report Type: Spontaneous
  Country: US (occurrence: US)
  Receive Date: 20130912
  Receipt Date: 20130912
  Transmission Date: 20140515
  Serious: Yes (Hospitalization)
  Sender: FDA-Public Use
  Company Number: US-BIOGENIDEC-2013BI085142

PATIENT
  Age: 76 Year
  Sex: Female

DRUGS (2)
  1. AVONEX [Suspect]
     Indication: MULTIPLE SCLEROSIS
     Route: 030
     Dates: start: 19980316, end: 20130520
  2. AVONEX [Suspect]
     Indication: MULTIPLE SCLEROSIS
     Route: 030
     Dates: start: 20130810

REACTIONS (10)
  - Cystitis [Recovered/Resolved]
  - Pneumonia [Recovered/Resolved]
  - Abasia [Recovered/Resolved]
  - Feeling cold [Recovered/Resolved]
  - Tremor [Recovered/Resolved]
  - Dehydration [Recovered/Resolved]
  - Glaucoma [Not Recovered/Not Resolved]
  - Blood potassium decreased [Recovered/Resolved]
  - Eyelid infection [Unknown]
  - Vomiting [Recovered/Resolved]
